FAERS Safety Report 14590708 (Version 1)
Quarter: 2018Q1

REPORT INFORMATION
  Report Type: Spontaneous
  Country: US (occurrence: US)
  Receive Date: 20180301
  Receipt Date: 20180301
  Transmission Date: 20180509
  Serious: Yes (Other)
  Sender: FDA-Public Use
  Company Number: None

PATIENT
  Age: 61 Year
  Sex: Female
  Weight: 72 kg

DRUGS (1)
  1. EUCRISA [Suspect]
     Active Substance: CRISABOROLE
     Indication: DERMATITIS ATOPIC
     Route: 061
     Dates: start: 20180217, end: 20180223

REACTIONS (4)
  - Hypersensitivity [None]
  - Erythema [None]
  - Pigmentation disorder [None]
  - Blister [None]

NARRATIVE: CASE EVENT DATE: 20180223
